FAERS Safety Report 10875250 (Version 3)
Quarter: 2015Q2

REPORT INFORMATION
  Report Type: Spontaneous
  Country: DE (occurrence: DE)
  Receive Date: 20150227
  Receipt Date: 20150513
  Transmission Date: 20150821
  Serious: Yes (Other)
  Sender: FDA-Public Use
  Company Number: DE-B.I. PHARMACEUTICALS,INC./RIDGEFIELD-2015-BI-06530DE

PATIENT
  Age: 75 Year
  Sex: Female
  Weight: 71 kg

DRUGS (6)
  1. GILOTRIF [Suspect]
     Active Substance: AFATINIB
     Indication: LUNG ADENOCARCINOMA
     Dosage: 20 MG
     Route: 048
     Dates: end: 20141213
  2. VITAMIN D [Concomitant]
     Active Substance: CHOLECALCIFEROL
     Indication: PRODUCT USED FOR UNKNOWN INDICATION
     Dosage: DAILY DOSE: 400 IE
     Route: 048
     Dates: start: 201409
  3. ZOLEDRONIC ACID [Concomitant]
     Active Substance: ZOLEDRONIC ACID
     Indication: PRODUCT USED FOR UNKNOWN INDICATION
     Dosage: 0.1429 MG
     Route: 042
     Dates: start: 201409
  4. GILOTRIF [Suspect]
     Active Substance: AFATINIB
     Indication: NON-SMALL CELL LUNG CANCER
     Dosage: 40 MG
     Route: 048
     Dates: start: 20140908
  5. GILOTRIF [Suspect]
     Active Substance: AFATINIB
     Indication: EGFR GENE MUTATION
     Dosage: 30 MG
     Route: 048
  6. LERCANIDIPIN [Concomitant]
     Indication: ILL-DEFINED DISORDER
     Dosage: 10 MG
     Route: 048

REACTIONS (4)
  - Diarrhoea [Recovered/Resolved]
  - Hepatic necrosis [Recovered/Resolved]
  - Hepatitis [Recovered/Resolved]
  - Drug-induced liver injury [Unknown]

NARRATIVE: CASE EVENT DATE: 20141106
